FAERS Safety Report 6173990-7 (Version None)
Quarter: 2009Q2

REPORT INFORMATION
  Report Type: 
  Country: None (occurrence: None)
  Receive Date: 20090430
  Receipt Date: 20080807
  Transmission Date: 20091009
  Serious: No
  Sender: FDA-Public Use
  Company Number: US-ASTRAZENECA-2004UW19261

PATIENT
  Sex: Male

DRUGS (7)
  1. NEXIUM [Suspect]
     Indication: GASTROOESOPHAGEAL REFLUX DISEASE
     Route: 048
     Dates: start: 20080729
  2. NEXIUM [Suspect]
     Route: 048
     Dates: start: 20051101
  3. THYROID TAB [Concomitant]
  4. PEPCID [Concomitant]
  5. CLINDINIUM/CHLORDIAZEPOXIDE [Concomitant]
  6. LISINOPRIL [Concomitant]
  7. DILTIAZEM [Concomitant]

REACTIONS (6)
  - ABDOMINAL DISTENSION [None]
  - ARTHRALGIA [None]
  - DYSPNOEA [None]
  - ERECTILE DYSFUNCTION [None]
  - EYE PAIN [None]
  - HYPOTONIA [None]
